FAERS Safety Report 7396030-0 (Version None)
Quarter: 2011Q1

REPORT INFORMATION
  Report Type: 
  Country: None (occurrence: None)
  Receive Date: 20110325
  Receipt Date: 20110310
  Transmission Date: 20110831
  Serious: Yes (Other)
  Sender: FDA-Public Use
  Company Number: 2011-00325

PATIENT
  Age: 58 Year
  Sex: Male

DRUGS (1)
  1. SIMVASTATIN [Suspect]
     Indication: HYPERLIPIDAEMIA
     Dosage: 40 MG (40 MG,1 IN 1 D),ORAL
     Route: 048
     Dates: start: 20070801, end: 20110129

REACTIONS (5)
  - SYSTEMIC LUPUS ERYTHEMATOSUS [None]
  - LIMB DISCOMFORT [None]
  - DERMATOMYOSITIS [None]
  - ARTHRALGIA [None]
  - RASH MACULO-PAPULAR [None]
